FAERS Safety Report 6084446-4 (Version None)
Quarter: 2009Q1

REPORT INFORMATION
  Report Type: 
  Country: None (occurrence: None)
  Receive Date: 20090219
  Receipt Date: 20090212
  Transmission Date: 20090719
  Serious: Yes (Disabling, Other)
  Sender: FDA-Public Use
  Company Number: US-ASTRAZENECA-2007UW07864

PATIENT
  Age: 54 Year
  Sex: Male

DRUGS (9)
  1. RHINOCORT [Suspect]
     Indication: NASAL CONGESTION
     Dosage: TWO SPRAYS IN EACH NOSTRIL EVERY MORNING
     Route: 045
     Dates: start: 20040601
  2. VYTORIN [Concomitant]
     Route: 048
  3. CARTIA XT [Concomitant]
     Route: 048
  4. CARTIA XT [Concomitant]
     Route: 048
  5. CARDIZEM CD [Concomitant]
     Route: 048
  6. MOTRIN [Concomitant]
     Dosage: AS NEEDED
     Route: 048
  7. MEVACOR [Concomitant]
     Route: 048
  8. LIPITOR [Concomitant]
     Route: 048
  9. LIPITOR [Concomitant]
     Route: 048

REACTIONS (3)
  - ASTHENOPIA [None]
  - CATARACT SUBCAPSULAR [None]
  - HEADACHE [None]
